FAERS Safety Report 6219728-6 (Version None)
Quarter: 2009Q2

REPORT INFORMATION
  Report Type: 
  Country: None (occurrence: None)
  Receive Date: 20090609
  Receipt Date: 20090109
  Transmission Date: 20091009
  Serious: Yes (Death, Hospitalization)
  Sender: FDA-Public Use
  Company Number: EC-PFIZER INC-2006151452

PATIENT
  Age: 62 Year

DRUGS (6)
  1. SUNITINIB MALATE [Suspect]
     Indication: RENAL CANCER METASTATIC
     Dosage: 50 MG, 1X/DAY
     Route: 048
     Dates: start: 20061012, end: 20061204
  2. MORPHINE [Concomitant]
     Route: 048
  3. GABAPENTIN [Concomitant]
     Route: 048
  4. OMEPRAZOLE [Concomitant]
     Route: 048
  5. EUTIROX [Concomitant]
     Route: 048
  6. TAMSULOSIN HCL [Concomitant]
     Route: 048

REACTIONS (2)
  - CONVULSION [None]
  - SEPSIS [None]
